FAERS Safety Report 24778734 (Version 2)
Quarter: 2025Q4

REPORT INFORMATION
  Report Type: Spontaneous
  Country: US (occurrence: US)
  Receive Date: 20241226
  Receipt Date: 20251130
  Transmission Date: 20260117
  Serious: No
  Sender: SANOFI AVENTIS
  Company Number: US-SA-2024SA381044

PATIENT
  Age: 8 Year
  Sex: Male
  Weight: 38 kg

DRUGS (1)
  1. DUPIXENT [Suspect]
     Active Substance: DUPILUMAB
     Indication: Eosinophilic oesophagitis
     Dosage: 200 MG, QOW
     Route: 058

REACTIONS (3)
  - Upper respiratory tract infection [Unknown]
  - Product dose omission issue [Unknown]
  - Incorrect dose administered [Unknown]
